FAERS Safety Report 7156266-0 (Version None)
Quarter: 2010Q4

REPORT INFORMATION
  Report Type: 
  Country: None (occurrence: None)
  Receive Date: 20101214
  Receipt Date: 20101104
  Transmission Date: 20110411
  Serious: No
  Sender: FDA-Public Use
  Company Number: US-JNJFOC-20101101679

PATIENT
  Sex: Female
  Weight: 102.97 kg

DRUGS (7)
  1. INVEGA SUSTENNA [Suspect]
     Indication: SCHIZOAFFECTIVE DISORDER BIPOLAR TYPE
     Route: 030
  2. DEPAKOTE [Concomitant]
     Dosage: 3000 MG IN MORNING AND 2000 MG AT BEDTIME
     Route: 048
  3. INVEGA [Concomitant]
     Indication: SCHIZOAFFECTIVE DISORDER BIPOLAR TYPE
     Route: 048
  4. ACTOS [Concomitant]
     Dosage: 15 MG IN MORNING AND 15 MG AT NIGHT
     Route: 048
  5. LEVOTHYROXINE [Concomitant]
     Indication: HYPOTHYROIDISM
     Route: 048
  6. HYDROCHLOROTHIAZIDE [Concomitant]
     Indication: HYPERTENSION
     Route: 048
  7. LOVAZA [Concomitant]
     Route: 048

REACTIONS (2)
  - BRUXISM [None]
  - TREMOR [None]
